FAERS Safety Report 4791069-3 (Version None)
Quarter: 2005Q4

REPORT INFORMATION
  Report Type: 
  Country: None (occurrence: None)
  Receive Date: 20051005
  Receipt Date: 20050919
  Transmission Date: 20060501
  Serious: Yes (Other)
  Sender: FDA-Public Use
  Company Number: GBS050818210

PATIENT
  Sex: Female

DRUGS (1)
  1. CYMBALTA [Suspect]
     Indication: DEPRESSION
     Dosage: 60 MG

REACTIONS (7)
  - CONTUSION [None]
  - DIZZINESS [None]
  - HYPERHIDROSIS [None]
  - NYSTAGMUS [None]
  - PALPITATIONS [None]
  - SYNCOPE [None]
  - VERTIGO [None]
